FAERS Safety Report 9429646 (Version 1)
Quarter: 2013Q3

REPORT INFORMATION
  Report Type: Spontaneous
  Country: CA (occurrence: CA)
  Receive Date: 20130730
  Receipt Date: 20130730
  Transmission Date: 20140515
  Serious: Yes (Disabling, Other)
  Sender: FDA-Public Use
  Company Number: CA-ACTELION-A-US2013-84768

PATIENT
  Age: 39 Year
  Sex: Male

DRUGS (2)
  1. ZAVESCA [Suspect]
     Indication: NIEMANN-PICK DISEASE
     Dosage: 600 MG, QD
     Route: 048
     Dates: start: 2013
  2. ZAVESCA [Suspect]
     Dosage: 200 UNK, UNK
     Route: 048

REACTIONS (3)
  - Psychotic disorder [Unknown]
  - Inappropriate schedule of drug administration [Unknown]
  - Tremor [Unknown]
